FAERS Safety Report 16078012 (Version 1)
Quarter: 2019Q1

REPORT INFORMATION
  Report Type: Spontaneous
  Country: US (occurrence: US)
  Receive Date: 20190315
  Receipt Date: 20190315
  Transmission Date: 20190418
  Serious: Yes (Hospitalization)
  Sender: FDA-Public Use
  Company Number: US-JNJFOC-20190314135

PATIENT
  Age: 51 Year
  Sex: Male
  Weight: 91 kg

DRUGS (2)
  1. BACTRIM [Suspect]
     Active Substance: SULFAMETHOXAZOLE\TRIMETHOPRIM
     Indication: LOCALISED INFECTION
     Route: 065
  2. INVOKANA [Suspect]
     Active Substance: CANAGLIFLOZIN
     Indication: DIABETES MELLITUS
     Route: 048

REACTIONS (6)
  - Staphylococcal osteomyelitis [Unknown]
  - Post procedural haemorrhage [Unknown]
  - Cellulitis [Unknown]
  - Acute kidney injury [Recovering/Resolving]
  - Toe amputation [Unknown]
  - Diabetic ulcer [Unknown]

NARRATIVE: CASE EVENT DATE: 201603
